FAERS Safety Report 6528032-8 (Version None)
Quarter: 2009Q4

REPORT INFORMATION
  Report Type: 
  Country: None (occurrence: None)
  Receive Date: 20091222
  Receipt Date: 20090911
  Transmission Date: 20100525
  Serious: No
  Sender: FDA-Public Use
  Company Number: ALL1-2009-02687

PATIENT
  Age: 54 Year
  Sex: Male
  Weight: 104.3 kg

DRUGS (11)
  1. VYVANSE [Suspect]
     Indication: ATTENTION DEFICIT/HYPERACTIVITY DISORDER
     Dosage: SEE IMAGE
     Route: 048
     Dates: start: 20090701, end: 20090701
  2. VYVANSE [Suspect]
     Indication: ATTENTION DEFICIT/HYPERACTIVITY DISORDER
     Dosage: SEE IMAGE
     Route: 048
     Dates: start: 20090701, end: 20090801
  3. VYVANSE [Suspect]
     Indication: ATTENTION DEFICIT/HYPERACTIVITY DISORDER
     Dosage: SEE IMAGE
     Route: 048
     Dates: start: 20090802
  4. ACTOS /01460201/ (PIOGLITAZONE) [Concomitant]
  5. METFORMIN HCL [Concomitant]
  6. FISH OIL (FISH OIL) [Concomitant]
  7. BENAZEPRIL HYDROCHLORIDE [Concomitant]
  8. PRAVASTATIN [Concomitant]
  9. ZYRTEC-D 12 HOUR [Concomitant]
  10. TRAZODONE HCL [Concomitant]
  11. PRISTIQ (DESVENLAFAXINE SUCCINATE) [Concomitant]

REACTIONS (4)
  - EYE DISORDER [None]
  - INSOMNIA [None]
  - SINUS HEADACHE [None]
  - TENSION [None]
